FAERS Safety Report 5912746-4 (Version None)
Quarter: 2008Q3

REPORT INFORMATION
  Report Type: 
  Country: None (occurrence: None)
  Receive Date: 20080909
  Receipt Date: 20071121
  Transmission Date: 20090109
  Serious: Yes (Hospitalization, Disabling)
  Sender: FDA-Public Use
  Company Number: 163-20785-07100578

PATIENT
  Age: 63 Year
  Sex: Female

DRUGS (7)
  1. THALOMID [Suspect]
     Indication: MULTIPLE MYELOMA
     Dosage: 200 MG, BID, ORAL
     Route: 048
     Dates: start: 20070514
  2. ALLOPURINOL [Concomitant]
  3. METFORMIN HCL [Concomitant]
  4. HYDROCHLOROTHIAZIDE [Concomitant]
  5. AMITRIPTYLINE HYDROCHLORIDE [Concomitant]
  6. ANAPRIN (ANAPRIN) [Concomitant]
  7. GLIPIZIDE [Concomitant]

REACTIONS (2)
  - DEEP VEIN THROMBOSIS [None]
  - TREATMENT NONCOMPLIANCE [None]
